FAERS Safety Report 9582115 (Version 1)
Quarter: 2013Q4

REPORT INFORMATION
  Report Type: Spontaneous
  Country: US (occurrence: US)
  Receive Date: 20131002
  Receipt Date: 20131002
  Transmission Date: 20140711
  Serious: No
  Sender: FDA-Public Use
  Company Number: US-AMGEN-USASP2013043748

PATIENT
  Age: 61 Year
  Sex: Female
  Weight: 64.4 kg

DRUGS (16)
  1. ENBREL [Suspect]
     Indication: PRODUCT USED FOR UNKNOWN INDICATION
     Dosage: 50 MG, QWK
     Route: 058
  2. VITAMIN D                          /00107901/ [Concomitant]
     Dosage: 2000 UNIT, UNK
  3. OMEGA 3                            /01334101/ [Concomitant]
     Dosage: 1000 MG, UNK
  4. FLUOXETINE [Concomitant]
     Dosage: 40 MG, UNK
  5. TRAZODONE [Concomitant]
     Dosage: 100 MG, UNK
  6. MELOXICAM [Concomitant]
     Dosage: 15 MG, UNK
  7. NEXIUM                             /01479302/ [Concomitant]
     Dosage: 40 MG, UNK
  8. MAGNESIUM [Concomitant]
     Dosage: 400 MG, UNK
  9. POTASSIUM GLUCONATE [Concomitant]
     Dosage: 2.5 MEQ, UNK
  10. LEUCOVORIN CALCIUM                 /00566702/ [Concomitant]
     Dosage: UNK
  11. FOLIC ACID [Concomitant]
     Dosage: UNK
  12. LEVOTHYROXIN [Concomitant]
     Dosage: 100 MUG, UNK
  13. ALLEGRA [Concomitant]
     Dosage: 30 MG, UNK
  14. STRESS FORMULA                     /02361601/ [Concomitant]
     Dosage: UNK
  15. PROVENTIL                          /00139501/ [Concomitant]
     Dosage: 90 MUG, UNK
  16. LORAZEPAM [Concomitant]
     Dosage: 1 MG, UNK

REACTIONS (2)
  - Therapeutic response decreased [Unknown]
  - Arthropathy [Unknown]
